FAERS Safety Report 11558688 (Version 1)
Quarter: 2015Q3

REPORT INFORMATION
  Report Type: Spontaneous
  Country: BE (occurrence: BE)
  Receive Date: 20150928
  Receipt Date: 20150928
  Transmission Date: 20151125
  Serious: Yes (Hospitalization)
  Sender: FDA-Public Use
  Company Number: BE-ACCORD-034023

PATIENT
  Age: 68 Year
  Sex: Male
  Weight: 73 kg

DRUGS (6)
  1. ALLOPURINOL/ALLOPURINOL SODIUM [Suspect]
     Active Substance: ALLOPURINOL SODIUM
     Indication: PRODUCT USED FOR UNKNOWN INDICATION
  2. LISINOPRIL. [Suspect]
     Active Substance: LISINOPRIL
     Indication: PRODUCT USED FOR UNKNOWN INDICATION
  3. SALICYLATE SODIUM/SALICYLIC ACID/SALICYLIC ACID TRIETHANOLAMINE [Suspect]
     Active Substance: SODIUM SALICYLATE
     Indication: PRODUCT USED FOR UNKNOWN INDICATION
  4. PRAVASTATIN [Interacting]
     Active Substance: PRAVASTATIN\PRAVASTATIN SODIUM
     Indication: PRODUCT USED FOR UNKNOWN INDICATION
  5. FENOFIBRATE. [Interacting]
     Active Substance: FENOFIBRATE
     Indication: PRODUCT USED FOR UNKNOWN INDICATION
  6. ELVITEGRAVIR/COBICISTAT/EMTRICITABINE/TENOFOVIR DISOPROXIL FUMARATE [Interacting]
     Active Substance: COBICISTAT\ELVITEGRAVIR\EMTRICITABINE\TENOFOVIR DISOPROXIL FUMARATE
     Indication: HIV INFECTION CDC GROUP I

REACTIONS (5)
  - Rhabdomyolysis [Unknown]
  - Acute kidney injury [Unknown]
  - Drug interaction [Unknown]
  - Renal tubular necrosis [Unknown]
  - Gastrointestinal disorder [None]
